FAERS Safety Report 5875033-9 (Version None)
Quarter: 2008Q3

REPORT INFORMATION
  Report Type: 
  Country: None (occurrence: None)
  Receive Date: 20080908
  Receipt Date: 20080908
  Transmission Date: 20090109
  Serious: Yes (Other)
  Sender: FDA-Public Use
  Company Number: None

PATIENT
  Age: 10 Year
  Sex: Female
  Weight: 32.2054 kg

DRUGS (2)
  1. SINGULAIR [Suspect]
     Indication: ASTHMA
     Dosage: 5 MG CHEWABLE 1 DAILY PO
     Route: 048
     Dates: start: 20041221, end: 20080321
  2. SINGULAIR [Suspect]
     Indication: MULTIPLE ALLERGIES
     Dosage: 5 MG CHEWABLE 1 DAILY PO
     Route: 048
     Dates: start: 20041221, end: 20080321

REACTIONS (1)
  - DEPRESSION [None]
